FAERS Safety Report 17601815 (Version 8)
Quarter: 2020Q2

REPORT INFORMATION
  Report Type: Spontaneous
  Country: US (occurrence: US)
  Receive Date: 20200330
  Receipt Date: 20200630
  Transmission Date: 20200713
  Serious: Yes (Hospitalization)
  Sender: FDA-Public Use
  Company Number: US-ACTELION-A-NJ2020-203683

PATIENT
  Age: 58 Year
  Sex: Female
  Weight: 69.39 kg

DRUGS (5)
  1. OPSUMIT [Suspect]
     Active Substance: MACITENTAN
     Indication: PULMONARY ARTERIAL HYPERTENSION
     Dosage: 10 MG, QD
     Route: 048
  2. REMODULIN [Suspect]
     Active Substance: TREPROSTINIL
     Dosage: 26 NG/KG, PER MIN
     Route: 065
  3. WARFARIN [Concomitant]
     Active Substance: WARFARIN
  4. REMODULIN [Suspect]
     Active Substance: TREPROSTINIL
     Indication: PRODUCT USED FOR UNKNOWN INDICATION
     Dosage: 60 NG/KG, PER MIN
     Route: 065
  5. OXYGEN. [Concomitant]
     Active Substance: OXYGEN

REACTIONS (19)
  - Pneumonia [Unknown]
  - Depression [Unknown]
  - Oxygen consumption increased [Unknown]
  - Anxiety [Unknown]
  - Night sweats [Unknown]
  - Pain in jaw [Unknown]
  - Panic attack [Unknown]
  - Heart rate increased [Unknown]
  - Pyrexia [Unknown]
  - Headache [Unknown]
  - Feeling abnormal [Not Recovered/Not Resolved]
  - Neck pain [Unknown]
  - Catheter site pain [Unknown]
  - Pain [Unknown]
  - Cough [Unknown]
  - Dizziness [Unknown]
  - Catheter site erythema [Unknown]
  - Insomnia [Unknown]
  - Restless legs syndrome [Unknown]

NARRATIVE: CASE EVENT DATE: 20200401
